FAERS Safety Report 9649218 (Version 3)
Quarter: 2013Q4

REPORT INFORMATION
  Report Type: Spontaneous
  Country: US (occurrence: US)
  Receive Date: 20131028
  Receipt Date: 20131104
  Transmission Date: 20140711
  Serious: Yes (Other)
  Sender: FDA-Public Use
  Company Number: US-PFIZER INC-2013303350

PATIENT
  Age: 84 Year
  Sex: Female
  Weight: 72.56 kg

DRUGS (4)
  1. EFFEXOR XR [Suspect]
     Indication: ANXIETY
     Dosage: 75 MG, DAILY
     Dates: start: 20130808, end: 2013
  2. EFFEXOR XR [Interacting]
     Dosage: 37.5 MG, ALTERNATE DAY
     Dates: start: 2013, end: 2013
  3. EFFEXOR XR [Interacting]
     Dosage: UNK
     Dates: start: 2013, end: 20131020
  4. SINEMET [Interacting]
     Indication: PARKINSON^S DISEASE
     Dosage: CARBIDOPA 25 MG/LEVODOPA 250 MG, UNK

REACTIONS (8)
  - Headache [Unknown]
  - Musculoskeletal stiffness [Unknown]
  - Fatigue [Unknown]
  - Balance disorder [Unknown]
  - Malaise [Unknown]
  - Insomnia [Unknown]
  - Vomiting projectile [Unknown]
  - Drug interaction [Unknown]
